FAERS Safety Report 23857948 (Version 1)
Quarter: 2024Q2

REPORT INFORMATION
  Report Type: Spontaneous
  Country: US (occurrence: US)
  Receive Date: 20240515
  Receipt Date: 20240515
  Transmission Date: 20240716
  Serious: Yes (Hospitalization)
  Sender: FDA-Public Use
  Company Number: US-MYLANLABS-2024M1043582

PATIENT
  Age: 62 Year
  Sex: Female

DRUGS (11)
  1. DEXAMETHASONE [Suspect]
     Active Substance: DEXAMETHASONE
     Indication: Insulinoma
     Dosage: 2 MILLIGRAM, BID
     Route: 065
  2. DEXAMETHASONE [Suspect]
     Active Substance: DEXAMETHASONE
     Indication: Metastasis
  3. OCTREOTIDE [Suspect]
     Active Substance: OCTREOTIDE\OCTREOTIDE ACETATE
     Indication: Insulinoma
     Dosage: UNK
     Route: 065
  4. OCTREOTIDE [Suspect]
     Active Substance: OCTREOTIDE\OCTREOTIDE ACETATE
     Indication: Metastasis
  5. DEXTROSE [Suspect]
     Active Substance: DEXTROSE\DEXTROSE MONOHYDRATE
     Indication: Insulinoma
     Dosage: UNK, FLUIDS
     Route: 065
  6. DEXTROSE [Suspect]
     Active Substance: DEXTROSE\DEXTROSE MONOHYDRATE
     Indication: Metastasis
  7. DIAZOXIDE [Suspect]
     Active Substance: DIAZOXIDE
     Indication: Insulinoma
     Dosage: 200 MILLIGRAM, TID
     Route: 065
  8. DIAZOXIDE [Suspect]
     Active Substance: DIAZOXIDE
     Indication: Metastasis
  9. CAPECITABINE [Suspect]
     Active Substance: CAPECITABINE
     Indication: Insulinoma
     Dosage: 1 GRAM, BID
     Route: 065
  10. CAPECITABINE [Suspect]
     Active Substance: CAPECITABINE
     Indication: Metastasis
  11. SUNITINIB [Concomitant]
     Active Substance: SUNITINIB
     Indication: Pancreatic neuroendocrine tumour
     Dosage: UNK
     Route: 065

REACTIONS (4)
  - Drug ineffective [Unknown]
  - Drug intolerance [Unknown]
  - Gastrointestinal disorder [Unknown]
  - Off label use [Unknown]
